FAERS Safety Report 20895767 (Version 6)
Quarter: 2022Q3

REPORT INFORMATION
  Report Type: Report from Study
  Country: KR (occurrence: KR)
  Receive Date: 20220531
  Receipt Date: 20220930
  Transmission Date: 20221026
  Serious: Yes (Other)
  Sender: FDA-Public Use
  Company Number: KR-NOVARTISPH-NVSC2022KR123788

PATIENT
  Age: 67 Year
  Sex: Male
  Weight: 69.3 kg

DRUGS (5)
  1. BEOVU [Suspect]
     Active Substance: BROLUCIZUMAB-DBLL
     Indication: Neovascular age-related macular degeneration
     Dosage: 6 MG (RIGHT EYE)
     Route: 031
     Dates: start: 20220502, end: 20220502
  2. VIGAMOX [Concomitant]
     Active Substance: MOXIFLOXACIN HYDROCHLORIDE
     Indication: Evidence based treatment
     Dosage: 1 DRP (24), EYE DROP
     Route: 047
     Dates: start: 20220502, end: 202205
  3. DIQUAFOSOL TETRASODIUM [Concomitant]
     Active Substance: DIQUAFOSOL TETRASODIUM
     Indication: Dry eye
     Dosage: 0.4 ML
     Route: 047
     Dates: start: 20220520, end: 202205
  4. KYNEX 2 [Concomitant]
     Indication: Dry eye
     Dosage: UNK
     Route: 065
     Dates: start: 20220520, end: 202205
  5. CYPORIN [Concomitant]
     Indication: Dry eye
     Dosage: UNK (OPHTHALMIC EMULSION)
     Route: 047
     Dates: start: 20220520, end: 202205

REACTIONS (2)
  - Subretinal fluid [Unknown]
  - Anterior chamber cell [Recovered/Resolved]

NARRATIVE: CASE EVENT DATE: 20220520
